FAERS Safety Report 8971267 (Version 1)
Quarter: 2012Q4

REPORT INFORMATION
  Report Type: Report from Study
  Country: NL (occurrence: NL)
  Receive Date: 20121217
  Receipt Date: 20121217
  Transmission Date: 20130627
  Serious: Yes (Hospitalization)
  Sender: FDA-Public Use
  Company Number: NL-GLAXOSMITHKLINE-B0852908A

PATIENT
  Age: 45 Year
  Sex: Female
  Weight: 60 kg

DRUGS (9)
  1. ZELITREX [Suspect]
     Indication: PROPHYLAXIS
     Route: 048
     Dates: start: 2010
  2. RITUXIMAB [Suspect]
     Indication: DIFFUSE LARGE B-CELL LYMPHOMA
     Dosage: 620MG per day
     Route: 042
     Dates: start: 20100915
  3. PREDNISONE [Suspect]
     Indication: DIFFUSE LARGE B-CELL LYMPHOMA
     Dosage: 100MG per day
     Route: 048
     Dates: start: 20100915
  4. CYCLOPHOSPHAMIDE [Suspect]
     Indication: DIFFUSE LARGE B-CELL LYMPHOMA
     Dosage: 1200MG per day
     Route: 042
     Dates: start: 20100915
  5. DOXORUBICIN [Suspect]
     Indication: DIFFUSE LARGE B-CELL LYMPHOMA
     Dosage: 23MG per day
     Route: 042
     Dates: start: 20100915
  6. VINCRISTINE [Suspect]
     Indication: DIFFUSE LARGE B-CELL LYMPHOMA
     Dosage: 2MG per day
     Route: 042
     Dates: start: 20110915
  7. G-CSF [Suspect]
     Indication: DIFFUSE LARGE B-CELL LYMPHOMA
     Dosage: 6MG per day
     Route: 058
     Dates: start: 20100916
  8. ALLOPURINOL [Suspect]
     Indication: PROPHYLAXIS
     Dosage: 300MG per day
     Route: 048
     Dates: start: 2010
  9. CO-TRIMOXAZOLE [Suspect]
     Indication: PROPHYLAXIS
     Dosage: 400MG per day
     Route: 048
     Dates: start: 2010

REACTIONS (1)
  - Pyrexia [Recovered/Resolved]
